FAERS Safety Report 7753221-4 (Version None)
Quarter: 2011Q3

REPORT INFORMATION
  Report Type: 
  Country: None (occurrence: None)
  Receive Date: 20110915
  Receipt Date: 20110907
  Transmission Date: 20111222
  Serious: Yes (Other)
  Sender: FDA-Public Use
  Company Number: PHHY2011JP79795

PATIENT
  Age: 31 Year
  Sex: Female

DRUGS (3)
  1. FENTANYL [Concomitant]
     Dosage: 10 UG, UNK
  2. TETRACAINE POLYGYL STERILE OPHTHALMIC SOLUTION [Concomitant]
     Dosage: 2 ML, UNK
  3. METHYLERGOMETRINE MALEATE [Suspect]
     Indication: UTERINE SPASM
     Dosage: 0.2 MG, UNK
     Route: 042

REACTIONS (8)
  - LOSS OF CONSCIOUSNESS [None]
  - RESPIRATORY ARREST [None]
  - NAUSEA [None]
  - MYOCLONUS [None]
  - CEREBRAL VASOCONSTRICTION [None]
  - HEADACHE [None]
  - DYSPNOEA [None]
  - HYPOTONIA [None]
